FAERS Safety Report 8473993-3 (Version None)
Quarter: 2012Q2

REPORT INFORMATION
  Report Type: 
  Country: None (occurrence: None)
  Receive Date: 20120628
  Receipt Date: 20120330
  Transmission Date: 20120825
  Serious: Yes (Life-Threatening, Hospitalization, Other)
  Sender: FDA-Public Use
  Company Number: US-MYLANLABS-2012S1005524

PATIENT
  Age: 69 Year
  Sex: Male
  Weight: 87.09 kg

DRUGS (9)
  1. CLOZAPINE [Suspect]
     Indication: PARKINSON'S DISEASE
     Route: 048
     Dates: start: 20120222, end: 20120307
  2. CLOZAPINE [Suspect]
     Indication: PSYCHOTIC DISORDER
     Route: 048
     Dates: start: 20120222, end: 20120307
  3. MIDODRINE HYDROCHLORIDE [Concomitant]
  4. CARBIDOPA AND LEVODOPA [Concomitant]
     Dosage: 25/100MG TABLETS - 2 AT 07:00, 1.5 AT 11:00 AND 15:00 AND 1 AT 19:00
  5. HYDROCORTISONE ACETATE [Concomitant]
  6. VENLAFAXINE [Concomitant]
  7. MIDODRINE HYDROCHLORIDE [Concomitant]
  8. RIVASTIGMINE [Concomitant]
     Dates: start: 20111201
  9. CLOZAPINE [Suspect]
     Indication: HALLUCINATION
     Route: 048
     Dates: start: 20120222, end: 20120307

REACTIONS (4)
  - LEUKOPENIA [None]
  - GRANULOCYTOPENIA [None]
  - PNEUMONIA [None]
  - AGRANULOCYTOSIS [None]
